FAERS Safety Report 8108108-4 (Version None)
Quarter: 2011Q4

REPORT INFORMATION
  Report Type: 
  Country: None (occurrence: None)
  Receive Date: 20111223
  Receipt Date: 20110216
  Transmission Date: 20120403
  Serious: Yes (Hospitalization)
  Sender: FDA-Public Use
  Company Number: 323508

PATIENT
  Age: 71 Year
  Sex: Female
  Weight: 67.6 kg

DRUGS (2)
  1. LEVEMIR [Suspect]
     Indication: TYPE 2 DIABETES MELLITUS
     Dosage: 60 IU, QD, SUBCUTANEOUS ; 50 IU, QD, SUBCUTANEOUS
     Route: 058
     Dates: start: 20110201
  2. LEVEMIR [Suspect]
     Indication: TYPE 2 DIABETES MELLITUS
     Dosage: 60 IU, QD, SUBCUTANEOUS ; 50 IU, QD, SUBCUTANEOUS
     Route: 058
     Dates: end: 20110201

REACTIONS (1)
  - BLOOD GLUCOSE DECREASED [None]
